FAERS Safety Report 4307358-2 (Version None)
Quarter: 2004Q1

REPORT INFORMATION
  Report Type: 
  Country: None (occurrence: None)
  Receive Date: 20040226
  Receipt Date: 20040212
  Transmission Date: 20041129
  Serious: Yes (Other)
  Sender: FDA-Public Use
  Company Number: 2004008313

PATIENT
  Sex: Male
  Weight: 122.4712 kg

DRUGS (15)
  1. GEODON [Suspect]
     Indication: ILL-DEFINED DISORDER
     Dosage: (DAILY), ORAL
     Route: 048
     Dates: start: 20030101
  2. DILTIAZEM [Concomitant]
  3. TORSEMIDE [Concomitant]
  4. TAMSULOSIN (TAMSULOSIN) [Concomitant]
  5. GEMFIBROZIL [Concomitant]
  6. PAROXETINE HCL [Concomitant]
  7. HYOSCYAMINE SULFATE AND PHENOBARBITAL [Concomitant]
  8. CLONAZEPAM [Concomitant]
  9. POTASSIUM CHLORIDE [Concomitant]
  10. ATORVASTATIN CALCIUM [Concomitant]
  11. PANTOPRAZOLE (PANTOPRAZOLE) [Concomitant]
  12. QUETIAPINE FUMARATE (QUETIAPINE FUMARATE) [Concomitant]
  13. FENOFIBRATE [Concomitant]
  14. THEOPHYLLINE [Concomitant]
  15. ALL OTHER THERAPEUTIC PRODUCTS [Concomitant]

REACTIONS (2)
  - CHEST DISCOMFORT [None]
  - CHEST PAIN [None]
